FAERS Safety Report 17854994 (Version 1)
Quarter: 2020Q2

REPORT INFORMATION
  Report Type: Report from Study
  Country: US (occurrence: US)
  Receive Date: 20200603
  Receipt Date: 20200603
  Transmission Date: 20200714
  Serious: Yes (Life-Threatening, Hospitalization, Other)
  Sender: FDA-Public Use
  Company Number: US-ACCORD-183275

PATIENT
  Age: 4 Year
  Sex: Male

DRUGS (2)
  1. IMATINIB/IMATINIB MESILATE [Suspect]
     Active Substance: IMATINIB
     Indication: ACUTE LYMPHOCYTIC LEUKAEMIA
     Dosage: 340MG/M2 ONCE DAILY
  2. METHOTREXATE. [Suspect]
     Active Substance: METHOTREXATE
     Indication: ACUTE LYMPHOCYTIC LEUKAEMIA
     Dosage: ORAL MAINTENANCE PHASE?5G/M2  INFUSED OVER 24 HOURS

REACTIONS (5)
  - Neutropenia [Unknown]
  - Thrombocytopenia [Unknown]
  - Acute kidney injury [Unknown]
  - Mucosal inflammation [Unknown]
  - Oedema peripheral [Unknown]
